FAERS Safety Report 18518504 (Version 1)
Quarter: 2020Q4

REPORT INFORMATION
  Report Type: Spontaneous
  Country: ES (occurrence: ES)
  Receive Date: 20201118
  Receipt Date: 20201118
  Transmission Date: 20210114
  Serious: Yes (Other)
  Sender: FDA-Public Use
  Company Number: ES-TEVA-2020-ES-1848664

PATIENT
  Age: 89 Year
  Sex: Female

DRUGS (6)
  1. IRBESARTAN (7406A) [Concomitant]
     Active Substance: IRBESARTAN
     Dosage: 300 MG
     Route: 048
  2. ESCITALOPRAM [Suspect]
     Active Substance: ESCITALOPRAM OXALATE
     Indication: DEPRESSION
     Dosage: 15 MG
     Route: 048
     Dates: start: 201903
  3. AMLODIPINO (2503A) [Concomitant]
     Active Substance: AMLODIPINE BESYLATE
     Dosage: 5 MG
     Route: 048
  4. OMEPRAZOL 20 MG COMPRIMIDO [Concomitant]
     Dosage: 20 MG
     Route: 048
  5. CARDYL 10 MG COMPRIMIDOS RECUBIERTOS CON PELICULA [Concomitant]
     Dosage: 10 MG
     Route: 048
  6. ACIDO ACETILSALICILICO 100 MG COMPRIMIDO [Concomitant]
     Dosage: 100 MG
     Route: 048

REACTIONS (4)
  - Sinus bradycardia [Not Recovered/Not Resolved]
  - Syncope [Not Recovered/Not Resolved]
  - Electrocardiogram PR prolongation [Not Recovered/Not Resolved]
  - Fall [Not Recovered/Not Resolved]

NARRATIVE: CASE EVENT DATE: 201907
